FAERS Safety Report 6902698-2 (Version None)
Quarter: 2010Q3

REPORT INFORMATION
  Report Type: 
  Country: None (occurrence: None)
  Receive Date: 20100803
  Receipt Date: 20080730
  Transmission Date: 20110219
  Serious: No
  Sender: FDA-Public Use
  Company Number: US-PFIZER INC-2008043881

PATIENT
  Sex: Female
  Weight: 59 kg

DRUGS (5)
  1. LYRICA [Suspect]
     Indication: FIBROMYALGIA
     Route: 048
     Dates: start: 20080201
  2. GABAPENTIN [Concomitant]
  3. ALAVERT [Concomitant]
  4. CLARITIN [Concomitant]
  5. ULTRAM [Concomitant]

REACTIONS (6)
  - DISCOMFORT [None]
  - LARYNGITIS [None]
  - OROPHARYNGEAL PAIN [None]
  - RHINITIS SEASONAL [None]
  - SWELLING [None]
  - UPPER-AIRWAY COUGH SYNDROME [None]
